FAERS Safety Report 9805877 (Version 1)
Quarter: 2014Q1

REPORT INFORMATION
  Report Type: Spontaneous
  Country: JP (occurrence: JP)
  Receive Date: 20140109
  Receipt Date: 20140109
  Transmission Date: 20141002
  Serious: Yes (Hospitalization)
  Sender: FDA-Public Use
  Company Number: JP-EISAI INC-E2020-13426-SPO-JP

PATIENT
  Age: 69 Year
  Sex: Male

DRUGS (9)
  1. DONEPEZIL [Suspect]
     Indication: MEMORY IMPAIRMENT
     Route: 048
  2. DONEPEZIL [Suspect]
     Route: 048
  3. SULPIRIDE [Concomitant]
     Indication: MEMORY IMPAIRMENT
  4. CLONAZEPAM [Concomitant]
     Indication: PRODUCT USED FOR UNKNOWN INDICATION
  5. VALPROATE [Concomitant]
     Indication: PRODUCT USED FOR UNKNOWN INDICATION
     Route: 048
  6. VALPROATE [Concomitant]
     Route: 048
  7. DIAZEPAM [Concomitant]
     Indication: PROPHYLAXIS
  8. DIAZEPAM [Concomitant]
  9. DIAZEPAM [Concomitant]

REACTIONS (2)
  - Delirium [Unknown]
  - Grand mal convulsion [Recovered/Resolved]
